FAERS Safety Report 6668647-X (Version None)
Quarter: 2010Q2

REPORT INFORMATION
  Report Type: 
  Country: None (occurrence: None)
  Receive Date: 20100406
  Receipt Date: 20100325
  Transmission Date: 20101027
  Serious: Yes (Hospitalization, Other)
  Sender: FDA-Public Use
  Company Number: US-CELGENEUS-163-20785-10032329

PATIENT

DRUGS (5)
  1. THALOMID [Suspect]
     Route: 048
  2. THALOMID [Suspect]
     Route: 048
  3. THALOMID [Suspect]
     Dosage: 200MG ESCALATION BY 100MG DAILY DOSE NO GREATER THAN 400MG
     Route: 048
  4. CAPECITABINE [Suspect]
     Route: 065
  5. CAPECITABINE [Suspect]
     Route: 065

REACTIONS (14)
  - ANAEMIA [None]
  - DECREASED APPETITE [None]
  - DIARRHOEA [None]
  - DIZZINESS [None]
  - HYPOKALAEMIA [None]
  - HYPOTENSION [None]
  - MUCOSAL INFLAMMATION [None]
  - NAUSEA [None]
  - NEUROPATHY PERIPHERAL [None]
  - NEUTROPENIA [None]
  - OEDEMA [None]
  - PALMAR-PLANTAR ERYTHRODYSAESTHESIA SYNDROME [None]
  - SOMNOLENCE [None]
  - VOMITING [None]
